FAERS Safety Report 7090817-X (Version None)
Quarter: 2010Q4

REPORT INFORMATION
  Report Type: 
  Country: None (occurrence: None)
  Receive Date: 20101012
  Receipt Date: 20100614
  Transmission Date: 20110411
  Serious: No
  Sender: FDA-Public Use
  Company Number: US-001189

PATIENT
  Sex: Male
  Weight: 66.6 kg

DRUGS (1)
  1. KUVAN [Suspect]
     Indication: PHENYLKETONURIA
     Dosage: ORAL, 1300 MG QD ORAL
     Route: 048
     Dates: start: 20080303

REACTIONS (1)
  - TOOTH DELAMINATION [None]
